FAERS Safety Report 19677727 (Version 1)
Quarter: 2021Q3

REPORT INFORMATION
  Report Type: Other
  Country: CN (occurrence: CN)
  Receive Date: 20210810
  Receipt Date: 20210810
  Transmission Date: 20211014
  Serious: Yes (Other)
  Sender: FDA-Public Use
  Company Number: CN-GE HEALTHCARE LIFE SCIENCES-2021CSU003849

PATIENT

DRUGS (4)
  1. VISIPAQUE [Suspect]
     Active Substance: IODIXANOL
     Indication: ANGIOCARDIOGRAM
     Dosage: 640 MG, SINGLE
     Route: 013
     Dates: start: 20210722, end: 20210722
  2. VISIPAQUE [Suspect]
     Active Substance: IODIXANOL
     Indication: ACUTE MYOCARDIAL INFARCTION
  3. VISIPAQUE [Suspect]
     Active Substance: IODIXANOL
     Indication: PERCUTANEOUS CORONARY INTERVENTION
  4. SODIUM CHLORIDE. [Concomitant]
     Active Substance: SODIUM CHLORIDE
     Indication: ANGIOCARDIOGRAM
     Dosage: 200 ML, SINGLE
     Route: 013
     Dates: start: 20210722, end: 20210722

REACTIONS (4)
  - Dysphoria [Recovered/Resolved]
  - Blood pressure decreased [Recovered/Resolved]
  - Heart rate increased [Recovered/Resolved]
  - Chills [Recovered/Resolved]

NARRATIVE: CASE EVENT DATE: 20210722
